FAERS Safety Report 15525773 (Version 7)
Quarter: 2019Q1

REPORT INFORMATION
  Report Type: Spontaneous
  Country: US (occurrence: US)
  Receive Date: 20181018
  Receipt Date: 20190102
  Transmission Date: 20190417
  Serious: Yes (Hospitalization, Other)
  Sender: FDA-Public Use
  Company Number: US-009507513-1810USA006959

PATIENT
  Age: 29 Year
  Sex: Female

DRUGS (1)
  1. MAXALT [Suspect]
     Active Substance: RIZATRIPTAN BENZOATE
     Indication: MIGRAINE
     Dosage: UNKNOWN STRENGTH, DAILY
     Route: 048
     Dates: start: 2007, end: 201605

REACTIONS (27)
  - Insomnia [Unknown]
  - Malaise [Unknown]
  - Vomiting [Recovering/Resolving]
  - Somnolence [Recovering/Resolving]
  - Anxiety [Unknown]
  - Violence-related symptom [Unknown]
  - Abdominal pain [Recovering/Resolving]
  - Irritability [Unknown]
  - Adverse event [Unknown]
  - Nausea [Recovering/Resolving]
  - Muscle twitching [Recovering/Resolving]
  - Pain in extremity [Recovering/Resolving]
  - Affective disorder [Unknown]
  - Disturbance in attention [Unknown]
  - Exposure during pregnancy [Recovered/Resolved]
  - Memory impairment [Unknown]
  - Crying [Unknown]
  - Thrombosis [Recovering/Resolving]
  - Vision blurred [Recovering/Resolving]
  - Intentional product misuse [Unknown]
  - Pain [Unknown]
  - Judgement impaired [Unknown]
  - Facial pain [Recovering/Resolving]
  - Peripheral swelling [Recovering/Resolving]
  - Anger [Unknown]
  - Depression [Unknown]
  - Thyroid disorder [Unknown]

NARRATIVE: CASE EVENT DATE: 2014
